FAERS Safety Report 16037156 (Version 1)
Quarter: 2019Q1

REPORT INFORMATION
  Report Type: Spontaneous
  Country: US (occurrence: US)
  Receive Date: 20190305
  Receipt Date: 20190305
  Transmission Date: 20190418
  Serious: No
  Sender: FDA-Public Use
  Company Number: US-IMPAX LABORATORIES, LLC-2018-IPXL-03472

PATIENT
  Age: 71 Year
  Sex: Male
  Weight: 74 kg

DRUGS (2)
  1. RYTARY [Suspect]
     Active Substance: CARBIDOPA\LEVODOPA
     Dosage: 48.75/195MG, FOUR CAPSULES AT BEDTIME
     Route: 048
     Dates: start: 20180921, end: 20180924
  2. RYTARY [Suspect]
     Active Substance: CARBIDOPA\LEVODOPA
     Indication: PARKINSON^S DISEASE
     Dosage: 61.25/245MG, THREE CAPSULE BEDTIME
     Route: 048
     Dates: start: 20180921, end: 20180924

REACTIONS (3)
  - Impaired driving ability [Unknown]
  - Adverse event [Unknown]
  - Treatment noncompliance [Unknown]

NARRATIVE: CASE EVENT DATE: 20180924
